FAERS Safety Report 9515966 (Version 1)
Quarter: 2013Q3

REPORT INFORMATION
  Report Type: Spontaneous
  Country: US (occurrence: US)
  Receive Date: 20130911
  Receipt Date: 20130911
  Transmission Date: 20140515
  Serious: Yes (Other)
  Sender: FDA-Public Use
  Company Number: US-ASTRAZENECA-2013SE67138

PATIENT
  Age: 54 Year
  Sex: Male
  Weight: 90.7 kg

DRUGS (1)
  1. SEROQUEL [Suspect]
     Indication: SUICIDAL IDEATION
     Route: 048

REACTIONS (13)
  - Adverse event [Unknown]
  - Osteoarthritis [Unknown]
  - Arthropathy [Unknown]
  - Suicidal ideation [Unknown]
  - Visual impairment [Unknown]
  - Musculoskeletal discomfort [Unknown]
  - Joint dislocation [Unknown]
  - Ankle fracture [Unknown]
  - Arthropathy [Unknown]
  - Cerebrovascular accident [Unknown]
  - Muscle spasms [Unknown]
  - Convulsion [Unknown]
  - Hypersomnia [Unknown]
